FAERS Safety Report 8543295-5 (Version None)
Quarter: 2012Q3

REPORT INFORMATION
  Report Type: 
  Country: None (occurrence: None)
  Receive Date: 20120727
  Receipt Date: 20120717
  Transmission Date: 20120928
  Serious: No
  Sender: FDA-Public Use
  Company Number: US-BAYER-2012-072215

PATIENT
  Age: 88 Year
  Sex: Female
  Weight: 54 kg

DRUGS (8)
  1. WATER RETENTION MEDICATION [Concomitant]
  2. CALCIUM [Concomitant]
  3. ONE A DAY VITACRAVES GUMMIES [Concomitant]
  4. TRAMADOL HYDROCHLORIDE [Concomitant]
  5. ALEVE (CAPLET) [Suspect]
     Indication: ARTHRITIS
     Dosage: 1 DF, PRN
     Route: 048
     Dates: start: 20111201, end: 20120716
  6. CHOLESTEROL- AND TRIGLYCERIDE REDUCERS [Concomitant]
  7. BLOOD PRESSURE MEDICATION (NOS) [Concomitant]
  8. MULTI-VITAMINS [Concomitant]

REACTIONS (1)
  - ARTHRITIS [None]
